FAERS Safety Report 18335707 (Version 1)
Quarter: 2020Q4

REPORT INFORMATION
  Report Type: Spontaneous
  Country: CA (occurrence: CA)
  Receive Date: 20201001
  Receipt Date: 20201001
  Transmission Date: 20210113
  Serious: Yes (Other)
  Sender: FDA-Public Use
  Company Number: CA-CIRCASSIA PHARMACEUTICALS INC-2020CA005632

PATIENT

DRUGS (5)
  1. IPRATROPIUM BROMIDE;SALBUTAMOL SULFATE [Suspect]
     Active Substance: ALBUTEROL SULFATE\IPRATROPIUM BROMIDE
     Indication: PRODUCT USED FOR UNKNOWN INDICATION
     Dosage: UNK
     Route: 065
  2. OMALIZUMAB. [Suspect]
     Active Substance: OMALIZUMAB
     Indication: PRODUCT USED FOR UNKNOWN INDICATION
     Dosage: 14.0 YEARS
     Route: 065
  3. TUDORZA [Suspect]
     Active Substance: ACLIDINIUM BROMIDE
     Indication: PRODUCT USED FOR UNKNOWN INDICATION
     Dosage: 1 DF, BID
     Route: 055
  4. ALVESCO [Suspect]
     Active Substance: CICLESONIDE
     Indication: PRODUCT USED FOR UNKNOWN INDICATION
     Dosage: 200 UG, BID
     Route: 055
  5. SALBUTAMOL SULFATE [Suspect]
     Active Substance: ALBUTEROL SULFATE
     Indication: ASTHMA
     Dosage: 100 MG
     Route: 058

REACTIONS (8)
  - Therapeutic product effect incomplete [Unknown]
  - Wheezing [Unknown]
  - Pneumonia [Unknown]
  - Loss of personal independence in daily activities [Unknown]
  - Dyspnoea [Unknown]
  - Malaise [Unknown]
  - Asthma [Unknown]
  - Sleep disorder due to a general medical condition [Unknown]
